FAERS Safety Report 23200913 (Version 2)
Quarter: 2024Q1

REPORT INFORMATION
  Report Type: Report from Study
  Country: CA (occurrence: CA)
  Receive Date: 20231118
  Receipt Date: 20240311
  Transmission Date: 20240409
  Serious: No
  Sender: FDA-Public Use
  Company Number: CA-002147023-PHHY2019CA211879

PATIENT
  Age: 45 Year
  Sex: Male

DRUGS (1)
  1. AIMOVIG [Suspect]
     Active Substance: ERENUMAB-AOOE
     Indication: Migraine
     Dosage: UNK
     Route: 065
     Dates: start: 20190608, end: 20231003

REACTIONS (5)
  - Essential tremor [Unknown]
  - Abdominal distension [Unknown]
  - Headache [Unknown]
  - Blood pressure increased [Recovering/Resolving]
  - Constipation [Unknown]
